FAERS Safety Report 8957276 (Version 3)
Quarter: 2016Q1

REPORT INFORMATION
  Report Type: Report from Study
  Country: US (occurrence: US)
  Receive Date: 20121210
  Receipt Date: 20160222
  Transmission Date: 20160526
  Serious: Yes (Death, Other)
  Sender: FDA-Public Use
  Company Number: US-ROCHE-1162365

PATIENT

DRUGS (3)
  1. BORTEZOMIB [Suspect]
     Active Substance: BORTEZOMIB
     Indication: NON-HODGKIN^S LYMPHOMA
     Dosage: ON DAYS 1, 8, AND 15
     Route: 042
  2. RITUXIMAB [Suspect]
     Active Substance: RITUXIMAB
     Indication: NON-HODGKIN^S LYMPHOMA
     Dosage: ON DAYS 1, 8, AND 15 OF CYCLE 1
     Route: 042
  3. BENDAMUSTINE [Suspect]
     Active Substance: BENDAMUSTINE
     Indication: NON-HODGKIN^S LYMPHOMA
     Dosage: ON DAYS 1 AND 2
     Route: 042

REACTIONS (16)
  - Cerebrovascular accident [Fatal]
  - Leukopenia [Unknown]
  - Lymphopenia [Unknown]
  - Cough [Unknown]
  - Anaemia [Unknown]
  - Neuropathy peripheral [Unknown]
  - Fatigue [Unknown]
  - Neutropenia [Unknown]
  - Rash [Unknown]
  - Pancreatitis [Unknown]
  - Syncope [Unknown]
  - Thrombocytopenia [Unknown]
  - Constipation [Unknown]
  - Febrile neutropenia [Unknown]
  - Diarrhoea [Unknown]
  - Wound complication [Unknown]
